FAERS Safety Report 15335696 (Version 3)
Quarter: 2018Q4

REPORT INFORMATION
  Report Type: Report from Study
  Country: FR (occurrence: FR)
  Receive Date: 20180830
  Receipt Date: 20181013
  Transmission Date: 20190204
  Serious: Yes (Other)
  Sender: FDA-Public Use
  Company Number: PHHY2018FR063621

PATIENT
  Age: 9 Year
  Sex: Male
  Weight: 30 kg

DRUGS (3)
  1. INEXIUM [Concomitant]
     Active Substance: ESOMEPRAZOLE
     Indication: PRODUCT USED FOR UNKNOWN INDICATION
     Dosage: 40 MG, LONG TERM TREATMENT
     Route: 048
  2. VOTRIENT [Suspect]
     Active Substance: PAZOPANIB HYDROCHLORIDE
     Indication: BRAIN NEOPLASM MALIGNANT
     Dosage: 225 MG, QD
     Route: 048
     Dates: start: 20180310, end: 20180327
  3. LEVOTHYROX [Concomitant]
     Active Substance: LEVOTHYROXINE
     Indication: PRODUCT USED FOR UNKNOWN INDICATION
     Dosage: 37.5 UG, LONG TERM TREATMENT
     Route: 048

REACTIONS (6)
  - Dermatitis allergic [Recovered/Resolved]
  - Tongue ulceration [Recovered/Resolved]
  - Pruritus [Recovered/Resolved]
  - Perianal erythema [Unknown]
  - Mucosal inflammation [Recovered/Resolved]
  - Urticaria [Recovered/Resolved]

NARRATIVE: CASE EVENT DATE: 20180326
